FAERS Safety Report 21858926 (Version 1)
Quarter: 2023Q1

REPORT INFORMATION
  Report Type: Spontaneous
  Country: US (occurrence: US)
  Receive Date: 20230113
  Receipt Date: 20230113
  Transmission Date: 20230417
  Serious: Yes (Disabling)
  Sender: FDA-Public Use
  Company Number: US-SA-SAC20230112000095

PATIENT
  Sex: Female

DRUGS (2)
  1. DUPIXENT [Suspect]
     Active Substance: DUPILUMAB
     Indication: Dermatitis atopic
     Dosage: UNK
     Route: 065
  2. CIBINQO [Concomitant]
     Active Substance: ABROCITINIB
     Dosage: 100 MG, QD (QUANTITY: 30 TABLET REFILLS: 5)
     Route: 048

REACTIONS (4)
  - Impaired quality of life [Unknown]
  - Injection site discomfort [Unknown]
  - Pruritus [Not Recovered/Not Resolved]
  - Eczema [Unknown]
